FAERS Safety Report 16872159 (Version 3)
Quarter: 2022Q1

REPORT INFORMATION
  Report Type: Spontaneous
  Country: CH (occurrence: CH)
  Receive Date: 20191001
  Receipt Date: 20220201
  Transmission Date: 20220424
  Serious: Yes (Other)
  Sender: FDA-Public Use
  Company Number: CH-SM-2019-16558

PATIENT
  Age: 47 Year
  Sex: Female

DRUGS (24)
  1. IBUPROFEN [Suspect]
     Active Substance: IBUPROFEN
     Dosage: 1200 MILLIGRAM DAILY;
     Route: 048
     Dates: start: 20190825, end: 20190902
  2. HEPARIN [Suspect]
     Active Substance: HEPARIN SODIUM
     Dosage: AS NECESSARY
     Route: 042
     Dates: start: 20190818, end: 20190824
  3. HEPARIN [Suspect]
     Active Substance: HEPARIN SODIUM
     Dosage: AS NECESSARY
     Route: 042
     Dates: start: 20190826, end: 20190827
  4. WARFARIN [Suspect]
     Active Substance: WARFARIN
     Dosage: 5 MILLIGRAM DAILY;
     Route: 048
     Dates: start: 201907, end: 20190818
  5. WARFARIN [Suspect]
     Active Substance: WARFARIN
     Dosage: 5 MILLIGRAM DAILY;
     Route: 048
     Dates: start: 20190828, end: 20190902
  6. WARFARIN [Suspect]
     Active Substance: WARFARIN
     Dosage: 7.5 MILLIGRAM DAILY;
     Route: 048
     Dates: start: 20190902
  7. ENOXAPARIN SODIUM [Suspect]
     Active Substance: ENOXAPARIN SODIUM
     Dosage: 120 MILLIGRAM DAILY;
     Dates: start: 20190823, end: 20190825
  8. ENOXAPARIN SODIUM [Suspect]
     Active Substance: ENOXAPARIN SODIUM
     Dosage: 140 MILLIGRAM DAILY;
     Dates: start: 20190827, end: 201909
  9. ESOMEPRAZOLE [Suspect]
     Active Substance: ESOMEPRAZOLE
     Dosage: 40 MILLIGRAM DAILY;
     Route: 048
     Dates: start: 20190820, end: 201909
  10. DAFALGAN [Suspect]
     Active Substance: ACETAMINOPHEN
     Dosage: 3 GRAM DAILY;
     Route: 048
     Dates: start: 20190820, end: 20190828
  11. DAFALGAN [Suspect]
     Active Substance: ACETAMINOPHEN
     Dosage: NOT TAKEN ; AS NECESSARY
     Route: 048
     Dates: start: 20190828, end: 20190902
  12. LORAZEPAM [Suspect]
     Active Substance: LORAZEPAM
     Dosage: 1 MG 1X PER DAY MAXIMUM, AS NECESSARY
     Dates: start: 20190827, end: 20190902
  13. FUROSEMIDE [Concomitant]
     Active Substance: FUROSEMIDE
     Dates: end: 20190818
  14. LASIX [Concomitant]
     Active Substance: FUROSEMIDE
     Dates: start: 20190820, end: 20190821
  15. PERINDOPRIL [Concomitant]
     Active Substance: PERINDOPRIL
     Dates: end: 20190818
  16. MORPHINE [Concomitant]
     Active Substance: MORPHINE
     Dates: start: 20190820, end: 20190820
  17. FERROUS FUMARATE [Concomitant]
     Active Substance: FERROUS FUMARATE
     Dates: start: 20190820
  18. MOVICOL [Concomitant]
     Active Substance: POLYETHYLENE GLYCOL 3350\POTASSIUM CHLORIDE\SODIUM BICARBONATE\SODIUM CHLORIDE
     Dates: start: 20190820
  19. MAGNESIUM ASPARTATE [Concomitant]
     Active Substance: MAGNESIUM ASPARTATE
     Dates: start: 20190820
  20. PREDNISONE [Concomitant]
     Active Substance: PREDNISONE
     Dates: start: 20190827, end: 20190829
  21. TRAMADOL [Concomitant]
     Active Substance: TRAMADOL
     Dosage: NOT TAKEN ; AS NECESSARY
     Dates: end: 20190902
  22. PLAQUENIL [Concomitant]
     Active Substance: HYDROXYCHLOROQUINE SULFATE
     Dates: start: 2007, end: 2019
  23. ASPIRIN [Concomitant]
     Active Substance: ASPIRIN
     Dates: start: 2007, end: 2019
  24. ASCORBIC ACID\MINERALS\VITAMINS [Concomitant]
     Active Substance: ASCORBIC ACID\MINERALS\VITAMINS
     Dosage: NOT TAKEN
     Dates: end: 20190902

REACTIONS (1)
  - Mixed liver injury [Recovered/Resolved]

NARRATIVE: CASE EVENT DATE: 20190902
